FAERS Safety Report 21852068 (Version 2)
Quarter: 2023Q1

REPORT INFORMATION
  Report Type: Spontaneous
  Country: HK (occurrence: None)
  Receive Date: 20230112
  Receipt Date: 20230222
  Transmission Date: 20230418
  Serious: Yes (Other)
  Sender: FDA-Public Use
  Company Number: HK-ROCHE-3261138

PATIENT

DRUGS (1)
  1. HEMLIBRA [Suspect]
     Active Substance: EMICIZUMAB-KXWH
     Indication: Product used for unknown indication
     Route: 065

REACTIONS (6)
  - Haemorrhoids [Unknown]
  - Blister [Unknown]
  - Mouth haemorrhage [Unknown]
  - Headache [Unknown]
  - Pain [Unknown]
  - Tongue haemorrhage [Unknown]
